FAERS Safety Report 24444253 (Version 2)
Quarter: 2024Q4

REPORT INFORMATION
  Report Type: Report from Study
  Country: US (occurrence: US)
  Receive Date: 20241016
  Receipt Date: 20241017
  Transmission Date: 20250114
  Serious: No
  Sender: ROCHE
  Company Number: US-ROCHE-2728109

PATIENT
  Age: 60 Year
  Sex: Female

DRUGS (2)
  1. RITUXAN [Suspect]
     Active Substance: RITUXIMAB
     Indication: Scleritis
     Dosage: DAY 1 AND DAY 15, REPEAT EVERY 4 MONTHS
     Route: 042
  2. RITUXAN [Suspect]
     Active Substance: RITUXIMAB
     Indication: Eye inflammation
     Dosage: RITUXIMAB (10MG/ML) INJECTION, INFUSE  OVER 1 HOUR 1000 MG INTRAVENOUSLY ON DAY(S) 0 AND DAY(S) 14,
     Route: 042
     Dates: start: 20220419

REACTIONS (2)
  - Off label use [Unknown]
  - No adverse event [Unknown]
